FAERS Safety Report 9317902 (Version 1)
Quarter: 2013Q2

REPORT INFORMATION
  Report Type: Spontaneous
  Country: US (occurrence: US)
  Receive Date: 20130530
  Receipt Date: 20130530
  Transmission Date: 20140414
  Serious: No
  Sender: FDA-Public Use
  Company Number: US-NOVEN-12US005415

PATIENT
  Age: 6 Year
  Sex: Male
  Weight: 33.56 kg

DRUGS (2)
  1. DAYTRANA [Suspect]
     Indication: ATTENTION DEFICIT/HYPERACTIVITY DISORDER
     Dosage: 15 MG, QD
     Route: 062
  2. DAYTRANA [Suspect]
     Dosage: 10 MG, QD
     Route: 062

REACTIONS (6)
  - Disturbance in attention [Recovered/Resolved]
  - Application site erythema [Recovered/Resolved]
  - Wrong technique in drug usage process [Not Recovered/Not Resolved]
  - Incorrect drug administration duration [Not Recovered/Not Resolved]
  - Drug ineffective [None]
  - Product quality issue [Not Recovered/Not Resolved]
